APPROVED DRUG PRODUCT: PRILOSEC OTC
Active Ingredient: OMEPRAZOLE MAGNESIUM
Strength: EQ 20MG BASE
Dosage Form/Route: TABLET, DELAYED RELEASE;ORAL
Application: N021229 | Product #001
Applicant: ASTRAZENECA PHARMACEUTICALS LP
Approved: Jun 20, 2003 | RLD: Yes | RS: Yes | Type: OTC